FAERS Safety Report 4694291-X (Version None)
Quarter: 2005Q2

REPORT INFORMATION
  Report Type: 
  Country: None (occurrence: None)
  Receive Date: 20050620
  Receipt Date: 20050527
  Transmission Date: 20051028
  Serious: Yes (Hospitalization, Other)
  Sender: FDA-Public Use
  Company Number: FR-ABBOTT-05P-056-0301988-00

PATIENT
  Sex: Female
  Weight: 4.79 kg

DRUGS (4)
  1. AKINETON [Suspect]
     Indication: DRUG EXPOSURE DURING PREGNANCY
  2. CHLORPROMAZINE [Suspect]
     Indication: DRUG EXPOSURE DURING PREGNANCY
  3. CLONAZEPAM [Suspect]
     Indication: DRUG EXPOSURE DURING PREGNANCY
  4. LITHIUM [Suspect]
     Indication: DRUG EXPOSURE DURING PREGNANCY

REACTIONS (3)
  - FOETAL HEART RATE ABNORMAL [None]
  - MACROSOMIA [None]
  - SOMNOLENCE [None]
